FAERS Safety Report 19451517 (Version 1)
Quarter: 2021Q2

REPORT INFORMATION
  Report Type: Spontaneous
  Country: US (occurrence: US)
  Receive Date: 20210622
  Receipt Date: 20210622
  Transmission Date: 20210717
  Serious: No
  Sender: FDA-Public Use
  Company Number: None

PATIENT
  Age: 75 Year
  Sex: Female
  Weight: 127.01 kg

DRUGS (6)
  1. VITAMIN D3 [Concomitant]
     Active Substance: CHOLECALCIFEROL
  2. PREDNISONE. [Concomitant]
     Active Substance: PREDNISONE
  3. ZINC. [Concomitant]
     Active Substance: ZINC
  4. NOVOLIN 70/30 [Suspect]
     Active Substance: INSULIN HUMAN
     Indication: TYPE 2 DIABETES MELLITUS
     Dosage: ?          QUANTITY:2 DF DOSAGE FORM;?
     Route: 058
     Dates: start: 20210605, end: 20210616
  5. MSM [Concomitant]
     Active Substance: DIMETHYL SULFONE
  6. VITAMIN B12 [Concomitant]
     Active Substance: CYANOCOBALAMIN

REACTIONS (4)
  - Pain [None]
  - Eye disorder [None]
  - Abdominal distension [None]
  - Balance disorder [None]
